FAERS Safety Report 20156332 (Version 1)
Quarter: 2021Q4

REPORT INFORMATION
  Report Type: Spontaneous
  Country: JP (occurrence: JP)
  Receive Date: 20211207
  Receipt Date: 20211207
  Transmission Date: 20220303
  Serious: Yes (Life-Threatening, Hospitalization, Other)
  Sender: FDA-Public Use
  Company Number: JP-MSD-2106JPN001928J

PATIENT
  Age: 73 Year
  Sex: Male

DRUGS (3)
  1. KEYTRUDA [Suspect]
     Active Substance: PEMBROLIZUMAB
     Indication: Lung squamous cell carcinoma stage IV
     Dosage: 200 MILLIGRAM, Q3W
     Route: 041
     Dates: start: 20201228, end: 20210308
  2. CARBOPLATIN [Concomitant]
     Active Substance: CARBOPLATIN
     Indication: Lung squamous cell carcinoma stage IV
     Dosage: UNK
     Route: 065
     Dates: start: 20201228
  3. PACLITAXEL [Concomitant]
     Active Substance: PACLITAXEL
     Indication: Lung squamous cell carcinoma stage IV
     Dosage: UNK
     Route: 065
     Dates: start: 20201228

REACTIONS (4)
  - Posterior reversible encephalopathy syndrome [Recovered/Resolved]
  - Respiratory arrest [Recovered/Resolved]
  - Acute kidney injury [Recovered/Resolved]
  - Procalcitonin increased [Unknown]

NARRATIVE: CASE EVENT DATE: 20210405
